FAERS Safety Report 4944127-4 (Version None)
Quarter: 2006Q1

REPORT INFORMATION
  Report Type: 
  Country: None (occurrence: None)
  Receive Date: 20060315
  Receipt Date: 20030828
  Transmission Date: 20060701
  Serious: Yes (Hospitalization, Other)
  Sender: FDA-Public Use
  Company Number: PHFR2003GB03374

PATIENT
  Age: 21 Year
  Sex: Female

DRUGS (3)
  1. CLOZARIL [Suspect]
     Indication: BORDERLINE PERSONALITY DISORDER
     Route: 048
     Dates: start: 20020919, end: 20031007
  2. CLOZARIL [Suspect]
     Dates: start: 20031010
  3. VENLAFAXINE HCL [Concomitant]
     Route: 065

REACTIONS (7)
  - AKATHISIA [None]
  - BLOOD GLUCOSE INCREASED [None]
  - DIABETES MELLITUS [None]
  - ELECTROCARDIOGRAM QT PROLONGED [None]
  - GASTROENTERITIS [None]
  - INSOMNIA [None]
  - LOWER RESPIRATORY TRACT INFECTION [None]
